FAERS Safety Report 5204556-0 (Version None)
Quarter: 2007Q1

REPORT INFORMATION
  Report Type: 
  Country: None (occurrence: None)
  Receive Date: 20070110
  Receipt Date: 20060505
  Transmission Date: 20070707
  Serious: Yes (Hospitalization, Other)
  Sender: FDA-Public Use
  Company Number: US-BRISTOL-MYERS SQUIBB COMPANY-13369756

PATIENT
  Age: 34 Year
  Sex: Male
  Weight: 145 kg

DRUGS (3)
  1. ABILIFY [Suspect]
     Indication: SCHIZOPHRENIA, PARANOID TYPE
     Dates: start: 20040121
  2. ACTOS [Concomitant]
  3. LOPID [Concomitant]

REACTIONS (1)
  - PANCREATITIS [None]
